FAERS Safety Report 6544774-2 (Version None)
Quarter: 2010Q1

REPORT INFORMATION
  Report Type: 
  Country: None (occurrence: None)
  Receive Date: 20100121
  Receipt Date: 20100118
  Transmission Date: 20100710
  Serious: Yes (Hospitalization)
  Sender: FDA-Public Use
  Company Number: IT-BRISTOL-MYERS SQUIBB COMPANY-14938583

PATIENT
  Sex: Female

DRUGS (2)
  1. ETOPOSIDE [Suspect]
  2. CISPLATIN [Suspect]

REACTIONS (4)
  - DEHYDRATION [None]
  - HYPOTENSION [None]
  - NAUSEA [None]
  - VOMITING [None]
